FAERS Safety Report 6014000-1 (Version None)
Quarter: 2008Q4

REPORT INFORMATION
  Report Type: 
  Country: None (occurrence: None)
  Receive Date: 20081219
  Receipt Date: 20081007
  Transmission Date: 20090506
  Serious: No
  Sender: FDA-Public Use
  Company Number: A0580285A

PATIENT
  Age: 65 Year
  Sex: Male

DRUGS (5)
  1. AVODART [Suspect]
     Indication: BENIGN PROSTATIC HYPERPLASIA
     Dosage: .5MG PER DAY
     Route: 048
  2. CHOLESTEROL REDUCING AGENT [Suspect]
     Dosage: 900MG PER DAY
     Route: 048
     Dates: start: 20070701
  3. FLOMAX [Concomitant]
  4. OMEPRAZOLE [Concomitant]
  5. DOXAZOSIN MESYLATE [Concomitant]

REACTIONS (5)
  - ADVERSE EVENT [None]
  - LIBIDO DECREASED [None]
  - PROSTATIC SPECIFIC ANTIGEN INCREASED [None]
  - PROSTATOMEGALY [None]
  - SEMEN VOLUME DECREASED [None]
